FAERS Safety Report 8520663-9 (Version None)
Quarter: 2012Q3

REPORT INFORMATION
  Report Type: 
  Country: None (occurrence: None)
  Receive Date: 20120709
  Receipt Date: 20120622
  Transmission Date: 20120928
  Serious: Yes (Hospitalization)
  Sender: FDA-Public Use
  Company Number: TPA2012A04078

PATIENT
  Sex: Male

DRUGS (2)
  1. EDARBYCLOR [Suspect]
     Indication: HYPERTENSION
     Dosage: 1 IN 1 D, PER ORAL
     Route: 048
  2. UNKNOWN VITAMINS (VITAMINS NOS, MINERALS NOS) [Concomitant]

REACTIONS (1)
  - RENAL FAILURE [None]
